FAERS Safety Report 7907431-3 (Version None)
Quarter: 2011Q4

REPORT INFORMATION
  Report Type: 
  Country: None (occurrence: None)
  Receive Date: 20111109
  Receipt Date: 20111026
  Transmission Date: 20120403
  Serious: Yes (Hospitalization)
  Sender: FDA-Public Use
  Company Number: JP-2011-11775

PATIENT
  Age: 70 Year
  Sex: Female

DRUGS (5)
  1. PLAVIX [Suspect]
     Dosage: ORAL
     Route: 048
  2. DIOVAN [Suspect]
     Dosage: ORAL
     Route: 048
  3. PLETAL [Suspect]
     Indication: CEREBRAL INFARCTION
     Dosage: ORAL
     Route: 048
  4. RISPERDAL [Suspect]
     Dosage: ORAL
     Route: 048
  5. LIPITOR [Suspect]
     Dosage: ORAL
     Route: 048

REACTIONS (1)
  - AGRANULOCYTOSIS [None]
